FAERS Safety Report 4490228-7 (Version None)
Quarter: 2004Q4

REPORT INFORMATION
  Report Type: 
  Country: None (occurrence: None)
  Receive Date: 20041027
  Receipt Date: 20041019
  Transmission Date: 20050328
  Serious: Yes (Disabling)
  Sender: FDA-Public Use
  Company Number: 200412905GDS

PATIENT
  Age: 63 Year
  Sex: Male

DRUGS (3)
  1. CIPROFLOXACIN [Suspect]
     Indication: CYSTITIS
     Dosage: 500 MG, BID, ORAL
     Route: 048
  2. CIPROFLOXACIN [Suspect]
     Indication: CYSTITIS
     Dosage: 500 MG, BID, ORAL
     Route: 048
     Dates: start: 20040901
  3. LOSEC [Concomitant]

REACTIONS (1)
  - SKIN NODULE [None]
